FAERS Safety Report 7427417-5 (Version None)
Quarter: 2011Q2

REPORT INFORMATION
  Report Type: 
  Country: None (occurrence: None)
  Receive Date: 20110420
  Receipt Date: 20110407
  Transmission Date: 20111010
  Serious: Yes (Hospitalization, Other)
  Sender: FDA-Public Use
  Company Number: ES-GENENTECH-313509

PATIENT
  Age: 61 Year
  Sex: Male

DRUGS (2)
  1. SINTROM [Concomitant]
     Indication: PRODUCT USED FOR UNKNOWN INDICATION
  2. XOLAIR [Suspect]
     Indication: ASTHMA
     Dosage: 300 MG, Q15D
     Route: 058

REACTIONS (2)
  - IRON DEFICIENCY ANAEMIA [None]
  - THROMBOPHLEBITIS SUPERFICIAL [None]
